FAERS Safety Report 4681208-7 (Version None)
Quarter: 2005Q2

REPORT INFORMATION
  Report Type: 
  Country: None (occurrence: None)
  Receive Date: 20050602
  Receipt Date: 20050602
  Transmission Date: 20051028
  Serious: No
  Sender: FDA-Public Use
  Company Number: None

PATIENT
  Sex: Male
  Weight: 105.4 kg

DRUGS (5)
  1. LEUCOVORIN [Suspect]
     Dosage: IVP 20 MG/M2 ON DAYS 1 THROUGH 5
     Dates: start: 20050411
  2. COUMADIN [Concomitant]
  3. PERCOCET [Concomitant]
  4. REGLAN [Concomitant]
  5. COMPAZINE [Concomitant]

REACTIONS (2)
  - GASTRIC CANCER [None]
  - GASTRIC OUTLET OBSTRUCTION [None]
